FAERS Safety Report 7669784-3 (Version None)
Quarter: 2011Q3

REPORT INFORMATION
  Report Type: 
  Country: None (occurrence: None)
  Receive Date: 20110808
  Receipt Date: 20110803
  Transmission Date: 20111222
  Serious: Yes (Hospitalization, Other)
  Sender: FDA-Public Use
  Company Number: US-PFIZER INC-2011139965

PATIENT
  Sex: Female
  Weight: 91.2 kg

DRUGS (3)
  1. LYRICA [Suspect]
     Indication: FIBROMYALGIA
     Dosage: 150 MG, 2X/DAY
     Route: 048
     Dates: start: 20091021, end: 20110608
  2. WELLBUTRIN [Interacting]
     Indication: DEPRESSION
     Dosage: 75 MG, UNK
     Route: 048
  3. WELLBUTRIN [Interacting]
     Dosage: 100 MG, 3X/DAY

REACTIONS (2)
  - SUICIDAL IDEATION [None]
  - DRUG INTERACTION [None]
